FAERS Safety Report 9901907 (Version 3)
Quarter: 2014Q2

REPORT INFORMATION
  Report Type: Spontaneous
  Country: JP (occurrence: JP)
  Receive Date: 20140217
  Receipt Date: 20140620
  Transmission Date: 20141212
  Serious: Yes (Hospitalization, Other)
  Sender: FDA-Public Use
  Company Number: JP-GLAXOSMITHKLINE-B0969301A

PATIENT
  Age: 69 Year
  Sex: Female
  Weight: 50 kg

DRUGS (4)
  1. HYCAMTIN [Suspect]
     Indication: OVARIAN CANCER RECURRENT
     Dosage: 1.7MGM2 PER DAY
     Route: 042
     Dates: start: 20130806
  2. GRANISETRON [Concomitant]
     Indication: VOMITING
     Dosage: 3MG PER DAY
     Route: 042
     Dates: start: 20130806, end: 20131102
  3. DEXART [Concomitant]
     Indication: VOMITING
     Dosage: 3.3MG PER DAY
     Route: 042
     Dates: start: 20130806, end: 20131102
  4. CEFEPIME DIHYDROCHLORIDE [Concomitant]
     Indication: ANTIBIOTIC THERAPY
     Dosage: 2G PER DAY
     Route: 042
     Dates: start: 20131111, end: 20131117

REACTIONS (12)
  - Febrile neutropenia [Recovered/Resolved]
  - Fatigue [Recovered/Resolved]
  - White blood cell count decreased [Recovered/Resolved]
  - Neutrophil count decreased [Recovered/Resolved]
  - Anaemia [Recovering/Resolving]
  - Platelet count decreased [Recovered/Resolved]
  - Pyrexia [Recovered/Resolved]
  - Decreased appetite [Recovered/Resolved]
  - Malaise [Recovered/Resolved]
  - Alopecia [Recovered/Resolved]
  - Constipation [Recovered/Resolved]
  - Epistaxis [Recovered/Resolved]
